FAERS Safety Report 18822169 (Version 2)
Quarter: 2021Q1

REPORT INFORMATION
  Report Type: Spontaneous
  Country: JP (occurrence: JP)
  Receive Date: 20210202
  Receipt Date: 20210312
  Transmission Date: 20210419
  Serious: Yes (Death, Hospitalization)
  Sender: FDA-Public Use
  Company Number: JP-JAZZ-2021-JP-001537

PATIENT
  Age: 62 Year
  Sex: Female
  Weight: 67 kg

DRUGS (2)
  1. DEFITELIO [Suspect]
     Active Substance: DEFIBROTIDE SODIUM
     Indication: VENOOCCLUSIVE LIVER DISEASE
     Dosage: 25 MILLIGRAM/KILOGRAM/24 HOURS
     Route: 042
     Dates: start: 20201222, end: 20210121
  2. NAFAMOSTAT [Suspect]
     Active Substance: NAFAMOSTAT
     Indication: PRODUCT USED FOR UNKNOWN INDICATION
     Dosage: UNK
     Route: 042
     Dates: start: 20201225

REACTIONS (2)
  - Hypotension [Not Recovered/Not Resolved]
  - Catheter site haemorrhage [Not Recovered/Not Resolved]

NARRATIVE: CASE EVENT DATE: 20201225
